FAERS Safety Report 10687225 (Version 1)
Quarter: 2014Q4

REPORT INFORMATION
  Report Type: Spontaneous
  Country: US (occurrence: None)
  Receive Date: 20141230
  Receipt Date: 20141230
  Transmission Date: 20150529
  Serious: Yes (Hospitalization, Other)
  Sender: FDA-Public Use
  Company Number: None

PATIENT
  Age: 57 Year
  Sex: Male
  Weight: 87.1 kg

DRUGS (1)
  1. SULFAMETHOXAZOLE/TRIMETHOPRIM [Suspect]
     Active Substance: SULFAMETHOXAZOLE\TRIMETHOPRIM
     Indication: STEVENS-JOHNSON SYNDROME
     Route: 048
     Dates: start: 20141024, end: 20141027

REACTIONS (4)
  - Rash [None]
  - Stevens-Johnson syndrome [None]
  - Drug eruption [None]
  - Epidermal necrosis [None]

NARRATIVE: CASE EVENT DATE: 20141024
